FAERS Safety Report 4733101-9 (Version None)
Quarter: 2005Q3

REPORT INFORMATION
  Report Type: 
  Country: None (occurrence: None)
  Receive Date: 20050801
  Receipt Date: 20050801
  Transmission Date: 20060218
  Serious: Yes (Hospitalization)
  Sender: FDA-Public Use
  Company Number: None

PATIENT
  Age: 53 Year
  Sex: Male

DRUGS (4)
  1. FUROSEMIDE [Suspect]
     Indication: HYPERTENSION
     Dosage: 80 MG BID
     Dates: start: 20020101
  2. POTASSIUM CHLORIDE [Concomitant]
  3. HYDRALAZINE [Concomitant]
  4. GLYBURIDE [Concomitant]

REACTIONS (1)
  - HYPOKALAEMIA [None]
